FAERS Safety Report 10521883 (Version 2)
Quarter: 2014Q4

REPORT INFORMATION
  Report Type: Spontaneous
  Country: US (occurrence: None)
  Receive Date: 20141014
  Receipt Date: 20141204
  Transmission Date: 20150528
  Serious: No
  Sender: FDA-Public Use
  Company Number: 2014-US-010320

PATIENT
  Age: 14 Year
  Sex: Female
  Weight: 143.8 kg

DRUGS (2)
  1. XYREM [Suspect]
     Active Substance: SODIUM OXYBATE
     Indication: NARCOLEPSY
     Route: 048
     Dates: start: 201405
  2. ADDERALL (AMPHETAMINE ASOPARTATE, AMFETAMINE SULFATE, DEXAMFETAMINE SACCHARATE, DEXAMFETAMINE SULFATE) [Concomitant]

REACTIONS (5)
  - Communication disorder [None]
  - Inappropriate schedule of drug administration [None]
  - Social avoidant behaviour [None]
  - Obesity [None]
  - Off label use [None]
